APPROVED DRUG PRODUCT: DOXAZOSIN MESYLATE
Active Ingredient: DOXAZOSIN MESYLATE
Strength: EQ 2MG BASE
Dosage Form/Route: TABLET;ORAL
Application: A202824 | Product #002 | TE Code: AB
Applicant: ACCORD HEALTHCARE INC
Approved: Jun 11, 2014 | RLD: No | RS: No | Type: RX